FAERS Safety Report 6398300-1 (Version None)
Quarter: 2009Q4

REPORT INFORMATION
  Report Type: 
  Country: None (occurrence: None)
  Receive Date: 20091013
  Receipt Date: 20091012
  Transmission Date: 20100525
  Serious: Yes (Hospitalization)
  Sender: FDA-Public Use
  Company Number: AU-ROXANE LABORATORIES, INC.-2009-RO-01042RO

PATIENT
  Sex: Male

DRUGS (8)
  1. DIAZEPAM [Suspect]
     Indication: AGGRESSION
  2. DIAZEPAM [Suspect]
     Indication: PATIENT RESTRAINT
  3. DIAZEPAM [Suspect]
     Indication: SUICIDE ATTEMPT
  4. MIDAZOLAM HCL [Suspect]
     Indication: PATIENT RESTRAINT
  5. MIDAZOLAM HCL [Suspect]
     Indication: AGGRESSION
     Route: 042
  6. PROMETHAZINE [Suspect]
     Indication: SUICIDE ATTEMPT
  7. THIOPENTAL SODIUM [Concomitant]
     Indication: SEDATION
     Route: 042
  8. HALOPERIDOL [Concomitant]
     Indication: PATIENT RESTRAINT

REACTIONS (4)
  - AGGRESSION [None]
  - AGITATION [None]
  - INCOHERENT [None]
  - POISONING [None]
